FAERS Safety Report 17062895 (Version 1)
Quarter: 2019Q4

REPORT INFORMATION
  Report Type: Spontaneous
  Country: GB (occurrence: GB)
  Receive Date: 20191122
  Receipt Date: 20191122
  Transmission Date: 20200122
  Serious: Yes (Other)
  Sender: FDA-Public Use
  Company Number: GB-TEVA-2019-GB-1139280

PATIENT
  Age: 74 Year
  Sex: Female
  Weight: 94 kg

DRUGS (3)
  1. DIPROBASE [Concomitant]
     Active Substance: CHLOROCRESOL
     Dosage: AS DIRECTED
     Dates: start: 20080703
  2. ACETIC ACID. [Suspect]
     Active Substance: ACETIC ACID
     Dosage: 2 PERCENT
     Route: 001
     Dates: start: 20180807
  3. CALCIPOTRIOL [Concomitant]
     Active Substance: CALCIPOTRIENE
     Dosage: DAILY, ON AFFECTED AREA
     Dates: start: 20140610

REACTIONS (1)
  - Swelling face [Recovered/Resolved]

NARRATIVE: CASE EVENT DATE: 20180807
